FAERS Safety Report 16815757 (Version 1)
Quarter: 2019Q3

REPORT INFORMATION
  Report Type: Spontaneous
  Country: US (occurrence: US)
  Receive Date: 20190725
  Receipt Date: 20190725
  Transmission Date: 20191005
  Serious: No
  Sender: FDA-Public Use
  Company Number: None

PATIENT
  Age: 84 Year
  Sex: Male

DRUGS (12)
  1. LIPITOR [Concomitant]
     Active Substance: ATORVASTATIN CALCIUM
  2. ZYTIGA [Suspect]
     Active Substance: ABIRATERONE ACETATE
     Indication: PROSTATE CANCER
     Route: 048
     Dates: start: 20190706
  3. FIOMAX [Concomitant]
  4. ZESTRIL [Concomitant]
     Active Substance: LISINOPRIL
  5. CALCIUM+D [Concomitant]
     Active Substance: CALCIUM\VITAMIN D
  6. ALEVE [Concomitant]
     Active Substance: NAPROXEN SODIUM
  7. PROTONIX [Concomitant]
     Active Substance: PANTOPRAZOLE SODIUM
  8. PREDNISONE. [Concomitant]
     Active Substance: PREDNISONE
  9. MULTIVITAMIN [Concomitant]
     Active Substance: VITAMINS
  10. METAMUCIL [Concomitant]
     Active Substance: PLANTAGO SEED
  11. VITAMIN C [Concomitant]
     Active Substance: ASCORBIC ACID
  12. DOCUSATE [Concomitant]
     Active Substance: DOCUSATE

REACTIONS (1)
  - Hot flush [None]

NARRATIVE: CASE EVENT DATE: 20190708
